FAERS Safety Report 18177466 (Version 2)
Quarter: 2020Q3

REPORT INFORMATION
  Report Type: Spontaneous
  Country: RU (occurrence: RU)
  Receive Date: 20200820
  Receipt Date: 20200902
  Transmission Date: 20201103
  Serious: Yes (Hospitalization, Other)
  Sender: FDA-Public Use
  Company Number: NVSC2020RU227824

PATIENT
  Age: 6 Year
  Sex: Male

DRUGS (10)
  1. TOCILIZUMAB. [Suspect]
     Active Substance: TOCILIZUMAB
     Indication: PROPHYLAXIS AGAINST GRAFT VERSUS HOST DISEASE
     Dosage: 8 MG/KG (ON DAYS 1,3,15,26)
     Route: 065
  2. RITUXIMAB. [Suspect]
     Active Substance: RITUXIMAB
     Indication: PROPHYLAXIS AGAINST GRAFT VERSUS HOST DISEASE
     Dosage: (ON DAY 1)375 MG/M2
     Route: 065
  3. METHOTREXATE. [Suspect]
     Active Substance: METHOTREXATE
     Indication: STEM CELL TRANSPLANT
  4. ABATACEPT [Suspect]
     Active Substance: ABATACEPT
     Indication: PROPHYLAXIS AGAINST GRAFT VERSUS HOST DISEASE
     Dosage: 10 MG/KG (ON DAYS 1,3,15,26)
     Route: 065
  5. METHOTREXATE. [Suspect]
     Active Substance: METHOTREXATE
     Indication: PROPHYLAXIS AGAINST GRAFT VERSUS HOST DISEASE
     Dosage: 10 MG/M2 (FROM DAY 1)
     Route: 065
  6. CYCLOSPORINE. [Suspect]
     Active Substance: CYCLOSPORINE
     Indication: STEM CELL TRANSPLANT
  7. RITUXIMAB. [Suspect]
     Active Substance: RITUXIMAB
     Indication: STEM CELL TRANSPLANT
  8. CYCLOSPORINE. [Suspect]
     Active Substance: CYCLOSPORINE
     Indication: PROPHYLAXIS AGAINST GRAFT VERSUS HOST DISEASE
     Dosage: 2 MG/KG, QD (FROM DAY 1)
     Route: 065
  9. ABATACEPT [Suspect]
     Active Substance: ABATACEPT
     Indication: STEM CELL TRANSPLANT
  10. TOCILIZUMAB. [Suspect]
     Active Substance: TOCILIZUMAB
     Indication: STEM CELL TRANSPLANT

REACTIONS (13)
  - Neutropenic colitis [Recovered/Resolved]
  - Generalised oedema [Recovered/Resolved]
  - Transplant dysfunction [Recovered/Resolved]
  - Capillary permeability increased [Recovered/Resolved]
  - Graft versus host disease in gastrointestinal tract [Recovered/Resolved]
  - Product use in unapproved indication [Unknown]
  - Testicular oedema [Recovered/Resolved]
  - Febrile neutropenia [Recovered/Resolved]
  - Ascites [Recovered/Resolved]
  - Hepatitis [Recovered/Resolved]
  - Capillary leak syndrome [Recovered/Resolved]
  - Graft versus host disease in skin [Recovered/Resolved]
  - Cytomegalovirus infection reactivation [Recovered/Resolved]
